FAERS Safety Report 19072580 (Version 1)
Quarter: 2021Q1

REPORT INFORMATION
  Report Type: Spontaneous
  Country: IT (occurrence: IT)
  Receive Date: 20210330
  Receipt Date: 20210330
  Transmission Date: 20210420
  Serious: Yes (Death)
  Sender: FDA-Public Use
  Company Number: IT-TEVA-2021-IT-1895582

PATIENT
  Age: 60 Year
  Sex: Male

DRUGS (1)
  1. ALPRAZOLAM. [Suspect]
     Active Substance: ALPRAZOLAM
     Route: 048

REACTIONS (2)
  - Toxicity to various agents [Fatal]
  - Drug abuse [Fatal]
